FAERS Safety Report 7213426-8 (Version None)
Quarter: 2010Q4

REPORT INFORMATION
  Report Type: 
  Country: None (occurrence: None)
  Receive Date: 20101126
  Receipt Date: 20100208
  Transmission Date: 20110411
  Serious: Yes (Other)
  Sender: FDA-Public Use
  Company Number: WAES 0706USA00450

PATIENT
  Age: 65 Year
  Sex: Female

DRUGS (2)
  1. FOSAMAX [Suspect]
     Indication: OSTEOPOROSIS
     Dosage: 70 MG/WKY/PO
     Route: 048
     Dates: start: 20050520, end: 20060730
  2. FOSAMAX [Suspect]
     Indication: OSTEOPOROSIS
     Dosage: 70 MG/WKY/PO
     Route: 048
     Dates: start: 20010115

REACTIONS (13)
  - BONE DENSITY DECREASED [None]
  - BONE DISORDER [None]
  - DENTAL CARIES [None]
  - DENTAL NECROSIS [None]
  - GINGIVAL DISORDER [None]
  - HYPERCHOLESTEROLAEMIA [None]
  - INFECTION [None]
  - OSTEOARTHRITIS [None]
  - OSTEONECROSIS [None]
  - PERIODONTAL DISEASE [None]
  - PERIODONTITIS [None]
  - TOOTH DISORDER [None]
  - TOOTH FRACTURE [None]
